FAERS Safety Report 6783186-3 (Version None)
Quarter: 2010Q2

REPORT INFORMATION
  Report Type: 
  Country: None (occurrence: None)
  Receive Date: 20100622
  Receipt Date: 20100614
  Transmission Date: 20101027
  Serious: Yes (Other)
  Sender: FDA-Public Use
  Company Number: DE-JNJFOC-20100604322

PATIENT
  Age: 64 Year
  Sex: Female

DRUGS (4)
  1. HALDOL [Suspect]
     Indication: DRUG USE FOR UNKNOWN INDICATION
     Route: 048
     Dates: start: 20091209
  2. HALDOL [Suspect]
     Route: 048
     Dates: start: 20091209
  3. DIPIPERON [Suspect]
     Indication: DRUG USE FOR UNKNOWN INDICATION
     Route: 048
     Dates: start: 20091209
  4. LITHIUM CARBONATE [Concomitant]
     Route: 048

REACTIONS (1)
  - THROMBOSIS [None]
